FAERS Safety Report 7344749-X (Version None)
Quarter: 2011Q1

REPORT INFORMATION
  Report Type: 
  Country: None (occurrence: None)
  Receive Date: 20110310
  Receipt Date: 20110301
  Transmission Date: 20110831
  Serious: Yes (Hospitalization)
  Sender: FDA-Public Use
  Company Number: NL-MEDIMMUNE-MEDI-0012794

PATIENT
  Sex: Female
  Weight: 8.333 kg

DRUGS (2)
  1. SYNAGIS [Suspect]
     Route: 030
     Dates: start: 20101014, end: 20110204
  2. SYNAGIS [Suspect]
     Route: 030
     Dates: start: 20110301, end: 20110301

REACTIONS (4)
  - DIARRHOEA [None]
  - VOMITING [None]
  - HYPOPHAGIA [None]
  - DECREASED ACTIVITY [None]
